FAERS Safety Report 5813941-5 (Version None)
Quarter: 2008Q3

REPORT INFORMATION
  Report Type: 
  Country: None (occurrence: None)
  Receive Date: 20080717
  Receipt Date: 20080715
  Transmission Date: 20090109
  Serious: Yes (Death, Hospitalization)
  Sender: FDA-Public Use
  Company Number: US-GILEAD-2008-0017155

PATIENT
  Sex: Female
  Weight: 78.088 kg

DRUGS (16)
  1. LETAIRIS [Suspect]
     Indication: PULMONARY ARTERIAL HYPERTENSION
     Route: 048
     Dates: start: 20080520
  2. DILTIAZEM [Concomitant]
     Route: 048
  3. LASIX [Concomitant]
     Route: 048
  4. ASPIRIN [Concomitant]
     Route: 048
  5. PREDNISONE TAB [Concomitant]
     Route: 048
  6. FLONASE [Concomitant]
     Route: 045
  7. ALBUTEROL [Concomitant]
     Route: 055
  8. VENTOLIN [Concomitant]
     Route: 055
  9. NEURONTIN [Concomitant]
     Route: 048
  10. DARVOCET-N 100 [Concomitant]
     Route: 048
  11. FENTANYL CITRATE [Concomitant]
     Route: 061
  12. OXYCODONE HCL [Concomitant]
     Route: 048
  13. LYRICA [Concomitant]
     Route: 048
  14. NEXIUM [Concomitant]
     Route: 048
  15. NEPHRO-VIT [Concomitant]
     Route: 048
  16. RENAGEL [Concomitant]
     Route: 048

REACTIONS (2)
  - DEATH [None]
  - SEPTIC SHOCK [None]
